FAERS Safety Report 7272381-5 (Version None)
Quarter: 2011Q1

REPORT INFORMATION
  Report Type: 
  Country: None (occurrence: None)
  Receive Date: 20110203
  Receipt Date: 20110131
  Transmission Date: 20110831
  Serious: Yes (Other)
  Sender: FDA-Public Use
  Company Number: FR-SANOFI-AVENTIS-2011SA006192

PATIENT

DRUGS (1)
  1. MULTAQ [Suspect]
     Indication: CARDIAC FAILURE
     Route: 048

REACTIONS (2)
  - CONDITION AGGRAVATED [None]
  - CARDIAC FAILURE [None]
